FAERS Safety Report 22072934 (Version 1)
Quarter: 2023Q1

REPORT INFORMATION
  Report Type: Spontaneous
  Country: US (occurrence: US)
  Receive Date: 20230308
  Receipt Date: 20230308
  Transmission Date: 20230418
  Serious: Yes (Hospitalization)
  Sender: FDA-Public Use
  Company Number: US-CTI BIOPHARMA-2023US03435

PATIENT

DRUGS (16)
  1. VONJO [Suspect]
     Active Substance: PACRITINIB
     Indication: Product used for unknown indication
     Dosage: UNK
     Dates: start: 20220525, end: 20220615
  2. LUSPATERCEPT [Concomitant]
     Active Substance: LUSPATERCEPT
  3. FENTANYL [Concomitant]
     Active Substance: FENTANYL
  4. OXYCODONE [Concomitant]
     Active Substance: OXYCODONE
  5. ACYCLOVIR [Concomitant]
     Active Substance: ACYCLOVIR
  6. PAROXETINE [Concomitant]
     Active Substance: PAROXETINE
  7. ALLOPURINOL [Concomitant]
     Active Substance: ALLOPURINOL
  8. OMEPRAZOLE [Concomitant]
     Active Substance: OMEPRAZOLE
  9. COLCHICINE [Concomitant]
     Active Substance: COLCHICINE
     Dosage: UNK, PRN
  10. ONDANSETRON [Concomitant]
     Active Substance: ONDANSETRON
  11. FLUCONAZOLE [Concomitant]
     Active Substance: FLUCONAZOLE
  12. COMPAZINE [Concomitant]
     Active Substance: PROCHLORPERAZINE MALEATE
  13. CYANOCOBALAMIN [Concomitant]
     Active Substance: CYANOCOBALAMIN
  14. MAGNESIUM [Concomitant]
     Active Substance: MAGNESIUM
  15. VITAMIN D3 [Concomitant]
     Active Substance: CHOLECALCIFEROL
  16. XANAX [Concomitant]
     Active Substance: ALPRAZOLAM

REACTIONS (3)
  - Fatigue [Unknown]
  - Decreased appetite [Recovered/Resolved]
  - Diarrhoea [Unknown]

NARRATIVE: CASE EVENT DATE: 20220601
